FAERS Safety Report 16125475 (Version 1)
Quarter: 2019Q1

REPORT INFORMATION
  Report Type: Spontaneous
  Country: BR (occurrence: BR)
  Receive Date: 20190327
  Receipt Date: 20190327
  Transmission Date: 20190418
  Serious: Yes (Other)
  Sender: FDA-Public Use
  Company Number: BR-009507513-1902BRA010174

PATIENT
  Sex: Female
  Weight: 73 kg

DRUGS (8)
  1. ZOLPIDEM [Concomitant]
     Active Substance: ZOLPIDEM\ZOLPIDEM TARTRATE
     Indication: SLEEP DISORDER
     Dosage: UNK
  2. CALCIUM (UNSPECIFIED) (+) CHOLECALCIFEROL (+) CYANOCOBALAMIN [Concomitant]
     Indication: VITAMIN SUPPLEMENTATION
     Dosage: UNK
  3. NORIPURUM [Concomitant]
     Active Substance: IRON POLYMALTOSE
     Indication: PERNICIOUS ANAEMIA
     Dosage: UNK
  4. NUVARING [Suspect]
     Active Substance: ETHINYL ESTRADIOL\ETONOGESTREL
     Indication: CONTRACEPTION
     Dosage: 1 RING EVERY 3 WEEKS FOR 9 WEEKS, AND THEN 1 WEEK FOR FREE
     Route: 067
     Dates: start: 2005
  5. CITONEURIN (CYANOCOBALAMIN (+) PYRIDOXINE HYDROCHLORIDE (+) THIAMINE M [Concomitant]
     Indication: PERNICIOUS ANAEMIA
     Dosage: UNK
  6. NUVARING [Suspect]
     Active Substance: ETHINYL ESTRADIOL\ETONOGESTREL
     Dosage: EVERY 4 WEEKS
     Route: 067
     Dates: end: 2015
  7. NUVARING [Suspect]
     Active Substance: ETHINYL ESTRADIOL\ETONOGESTREL
     Dosage: SHE WOULD START USING THE RING FOR 4 WEEKS INSTEAD OF 3 WEEKS, THEORETICALLY WAS SUPPOSED TO REMOVE
     Route: 067
  8. DEPO-PROVERA [Suspect]
     Active Substance: MEDROXYPROGESTERONE ACETATE
     Dosage: UNK
     Dates: start: 2015, end: 2017

REACTIONS (6)
  - Product prescribing error [Unknown]
  - Incorrect product administration duration [Unknown]
  - Inappropriate schedule of product administration [Unknown]
  - Swelling [Not Recovered/Not Resolved]
  - Polyarteritis nodosa [Not Recovered/Not Resolved]
  - Menstruation irregular [Recovered/Resolved]

NARRATIVE: CASE EVENT DATE: 2005
